FAERS Safety Report 21589860 (Version 1)
Quarter: 2022Q4

REPORT INFORMATION
  Report Type: Spontaneous
  Country: CA (occurrence: CA)
  Receive Date: 20221114
  Receipt Date: 20221114
  Transmission Date: 20230113
  Serious: Yes (Other)
  Sender: FDA-Public Use
  Company Number: None

PATIENT
  Age: 37 Year
  Sex: Female

DRUGS (9)
  1. CISPLATIN [Suspect]
     Active Substance: CISPLATIN
     Indication: Disease recurrence
     Route: 065
  2. DOXORUBICIN [Suspect]
     Active Substance: DOXORUBICIN
     Indication: Anaplastic lymphoma receptor tyrosine kinase assay
     Route: 065
  3. GEMCITABINE [Suspect]
     Active Substance: GEMCITABINE
     Indication: Disease recurrence
     Route: 065
  4. BRENTUXIMAB VEDOTIN [Suspect]
     Active Substance: BRENTUXIMAB VEDOTIN
     Indication: ALK gene rearrangement assay
     Route: 065
  5. DEXAMETHASONE [Suspect]
     Active Substance: DEXAMETHASONE
     Indication: Disease recurrence
     Route: 065
  6. PREDNISONE [Suspect]
     Active Substance: PREDNISONE
     Indication: Anaplastic lymphoma receptor tyrosine kinase assay
     Route: 065
  7. CYCLOPHOSPHAMIDE [Suspect]
     Active Substance: CYCLOPHOSPHAMIDE
     Indication: Anaplastic lymphoma receptor tyrosine kinase assay
     Dosage: STRENGTH:25MG
     Route: 065
  8. ADCETRIS [Suspect]
     Active Substance: BRENTUXIMAB VEDOTIN
     Indication: Anaplastic large cell lymphoma T- and null-cell types refractory
     Dosage: POWDER FOR SOLUTION
     Route: 042
  9. CYCLOPHOSPHAMIDE [Suspect]
     Active Substance: CYCLOPHOSPHAMIDE
     Indication: Anaplastic large cell lymphoma T- and null-cell types refractory
     Route: 065

REACTIONS (8)
  - Blood calcium increased [Not Recovered/Not Resolved]
  - Blood lactate dehydrogenase increased [Not Recovered/Not Resolved]
  - Blood uric acid increased [Not Recovered/Not Resolved]
  - Condition aggravated [Not Recovered/Not Resolved]
  - Cytopenia [Not Recovered/Not Resolved]
  - Encephalopathy [Not Recovered/Not Resolved]
  - Splenomegaly [Not Recovered/Not Resolved]
  - Tumour lysis syndrome [Not Recovered/Not Resolved]
